FAERS Safety Report 12531141 (Version 1)
Quarter: 2016Q3

REPORT INFORMATION
  Report Type: Spontaneous
  Country: JP (occurrence: JP)
  Receive Date: 20160706
  Receipt Date: 20160706
  Transmission Date: 20161109
  Serious: Yes (Hospitalization)
  Sender: FDA-Public Use
  Company Number: JP-SHIONOGI, INC-2016000669

PATIENT
  Age: 65 Year
  Sex: Female
  Weight: 60 kg

DRUGS (9)
  1. FINIBAX [Suspect]
     Active Substance: DORIPENEM MONOHYDRATE
     Indication: BRAIN ABSCESS
     Dosage: 1 G, BID
     Route: 041
     Dates: start: 20151218, end: 20160118
  2. FLAGYL [Suspect]
     Active Substance: METRONIDAZOLE\METRONIDAZOLE HYDROCHLORIDE
     Dosage: 500 MG, QID
     Route: 048
     Dates: start: 20151223, end: 20160210
  3. CEFTRIAXONE SODIUM. [Concomitant]
     Active Substance: CEFTRIAXONE SODIUM
     Indication: BRAIN ABSCESS
     Dosage: 2 G, BID
     Route: 041
     Dates: start: 20151216, end: 20151218
  4. FLAGYL [Suspect]
     Active Substance: METRONIDAZOLE\METRONIDAZOLE HYDROCHLORIDE
     Indication: BRAIN ABSCESS
     Dosage: 250 MG, QID
     Route: 048
     Dates: start: 20151216, end: 20151222
  5. E KEPPRA [Concomitant]
     Active Substance: LEVETIRACETAM
     Indication: BRAIN ABSCESS
     Dosage: 500 MG, BID
     Route: 048
     Dates: start: 20151226, end: 20160203
  6. VANCOMYCIN HYDROCHLORIDE. [Concomitant]
     Active Substance: VANCOMYCIN HYDROCHLORIDE
     Indication: BRAIN ABSCESS
     Dosage: 1 G, BID
     Route: 041
     Dates: start: 20151218, end: 20160104
  7. ELIQUIS [Concomitant]
     Active Substance: APIXABAN
     Indication: VENOUS THROMBOSIS LIMB
     Dosage: 5 MG, BID
     Route: 048
     Dates: start: 20160128
  8. CEFCAPENE PIVOXIL HYDROCHLORIDE [Concomitant]
     Active Substance: CEFCAPENE PIVOXIL HYDROCHLORIDE
     Indication: BRAIN ABSCESS
     Dosage: 100 MG, TID
     Route: 048
     Dates: start: 20160119, end: 20160202
  9. DEPAKENE [Concomitant]
     Active Substance: VALPROIC ACID
     Indication: BRAIN ABSCESS
     Dosage: 400 MG, BID
     Route: 048
     Dates: start: 20160209, end: 20160309

REACTIONS (1)
  - Toxic encephalopathy [Recovering/Resolving]

NARRATIVE: CASE EVENT DATE: 20160120
